FAERS Safety Report 24403058 (Version 1)
Quarter: 2024Q4

REPORT INFORMATION
  Report Type: Report from Study
  Country: CN (occurrence: CN)
  Receive Date: 20241007
  Receipt Date: 20241007
  Transmission Date: 20250115
  Serious: No
  Sender: ROCHE
  Company Number: CN-ROCHE-3474722

PATIENT
  Age: 67 Year
  Sex: Female
  Weight: 71.0 kg

DRUGS (5)
  1. GAZYVA [Suspect]
     Active Substance: OBINUTUZUMAB
     Indication: Follicular lymphoma
     Dosage: FREQUENCY TEXT:ONCE
     Route: 041
     Dates: start: 20230902, end: 20231116
  2. CYCLOPHOSPHAMIDE [Concomitant]
     Active Substance: CYCLOPHOSPHAMIDE
     Indication: Follicular lymphoma
     Dosage: 0.2G / VIAL
     Route: 042
     Dates: start: 20230902, end: 20231116
  3. DOXORUBICIN HYDROCHLORIDE [Concomitant]
     Active Substance: DOXORUBICIN HYDROCHLORIDE
     Indication: Follicular lymphoma
     Dosage: 20MG:10ML / VIAL, INJECTION
     Route: 042
     Dates: start: 20230902, end: 20231116
  4. VINCRISTINE SULFATE [Concomitant]
     Active Substance: VINCRISTINE SULFATE
     Indication: Follicular lymphoma
     Dosage: 1ML:1MG / VIAL, 1 BOTTLE/BOX, INJECTION
     Route: 042
     Dates: start: 20230902, end: 20231116
  5. PREDNISOLONE [Concomitant]
     Active Substance: PREDNISOLONE
     Indication: Follicular lymphoma
     Dosage: 5MG/TABLET, 100 TABLETS/ BOTTLE, TABLETS
     Route: 048
     Dates: start: 20230902, end: 20231116

REACTIONS (2)
  - Upper respiratory tract infection [Unknown]
  - White blood cell count decreased [Unknown]

NARRATIVE: CASE EVENT DATE: 20231110
